FAERS Safety Report 8075849-7 (Version None)
Quarter: 2012Q1

REPORT INFORMATION
  Report Type: 
  Country: None (occurrence: None)
  Receive Date: 20120127
  Receipt Date: 20120126
  Transmission Date: 20120608
  Serious: Yes (Other)
  Sender: FDA-Public Use
  Company Number: US-PFIZER INC-2012008773

PATIENT
  Sex: Male
  Weight: 78.5 kg

DRUGS (5)
  1. CHANTIX [Suspect]
     Dosage: 0.5 MG, 2X/DAY
     Route: 048
     Dates: start: 20110101, end: 20110401
  2. VERAPAMIL [Concomitant]
     Indication: MIGRAINE
     Dosage: 40 MG, 3X/DAY
  3. CHANTIX [Suspect]
     Indication: SMOKING CESSATION THERAPY
     Dosage: 0.5 MG, 1X/DAY
     Route: 048
     Dates: start: 20110201, end: 20110101
  4. KLONOPIN [Concomitant]
     Indication: PANIC DISORDER
     Dosage: 1 MG, 2X/DAY
  5. KLONOPIN [Concomitant]
     Indication: ANXIETY

REACTIONS (5)
  - NAUSEA [None]
  - VOMITING [None]
  - SINUSITIS [None]
  - ABDOMINAL DISCOMFORT [None]
  - ABNORMAL DREAMS [None]
